FAERS Safety Report 13679303 (Version 1)
Quarter: 2017Q2

REPORT INFORMATION
  Report Type: Spontaneous
  Country: US (occurrence: US)
  Receive Date: 20170622
  Receipt Date: 20170622
  Transmission Date: 20170830
  Serious: Yes (Other)
  Sender: FDA-Public Use
  Company Number: US-SA-2017SA077651

PATIENT
  Age: 75 Year
  Sex: Male

DRUGS (1)
  1. HECTOROL [Suspect]
     Active Substance: DOXERCALCIFEROL
     Route: 065

REACTIONS (11)
  - Rash generalised [Unknown]
  - Vomiting [Unknown]
  - Swelling face [Unknown]
  - Seizure [Unknown]
  - Urticaria [Unknown]
  - Dysphonia [Unknown]
  - Nausea [Unknown]
  - Blood pressure decreased [Unknown]
  - Fluid overload [Unknown]
  - Hypersensitivity [Unknown]
  - Pruritus [Unknown]
